FAERS Safety Report 5025446-2 (Version None)
Quarter: 2006Q2

REPORT INFORMATION
  Report Type: 
  Country: None (occurrence: None)
  Receive Date: 20060608
  Receipt Date: 20060603
  Transmission Date: 20061013
  Serious: Yes (Hospitalization, Other)
  Sender: FDA-Public Use
  Company Number: 2006049699

PATIENT
  Age: 73 Year
  Sex: Male
  Weight: 83.9154 kg

DRUGS (8)
  1. LIPITOR [Suspect]
     Indication: BLOOD CHOLESTEROL
     Dosage: 80 MG (80 MG, 1 IN 1 D), ORAL
     Route: 048
     Dates: start: 20040101
  2. AGGRENOX [Concomitant]
  3. LISINOPRIL [Concomitant]
  4. ACTINAL (CYPROHEPTADINE HYDROCHLORIDE) [Concomitant]
  5. CALCIUM (CALCIUM) [Concomitant]
  6. ACIPHEX [Concomitant]
  7. HUMULIN N [Concomitant]
  8. HUMALOG [Concomitant]

REACTIONS (1)
  - CEREBROVASCULAR ACCIDENT [None]
